FAERS Safety Report 5978000-X (Version None)
Quarter: 2008Q4

REPORT INFORMATION
  Report Type: 
  Country: None (occurrence: None)
  Receive Date: 20081203
  Receipt Date: 20081127
  Transmission Date: 20090506
  Serious: Yes (Other)
  Sender: FDA-Public Use
  Company Number: FR-GILEAD-2008-0019251

PATIENT
  Sex: Male

DRUGS (2)
  1. TRUVADA [Suspect]
  2. KALETRA [Suspect]

REACTIONS (2)
  - NAUSEA [None]
  - OVERDOSE [None]
